FAERS Safety Report 8227714-X (Version None)
Quarter: 2012Q1

REPORT INFORMATION
  Report Type: 
  Country: None (occurrence: None)
  Receive Date: 20120322
  Receipt Date: 20120321
  Transmission Date: 20120608
  Serious: Yes (Life-Threatening, Hospitalization)
  Sender: FDA-Public Use
  Company Number: US-ROXANE LABORATORIES, INC.-2012-RO-00887RO

PATIENT
  Age: 56 Year
  Sex: Female

DRUGS (28)
  1. MYCOPHENOLATE MOFETIL [Concomitant]
     Indication: UVEITIS
     Dosage: 2000 MG
     Route: 048
     Dates: start: 20101024
  2. ROSUVASTATIN CALCIUM [Concomitant]
     Indication: BLOOD CHOLESTEROL
     Dates: start: 20100101
  3. VICODIN [Concomitant]
     Indication: HEADACHE
     Dates: start: 20111020
  4. PREDNISONE TAB [Suspect]
     Dosage: 50 MG
     Route: 048
     Dates: start: 20110928, end: 20111004
  5. CALCIUM WITH D [Concomitant]
     Indication: MINERAL SUPPLEMENTATION
     Dates: start: 20050101
  6. TRAMADOL HCL [Concomitant]
     Indication: ARTHRALGIA
     Dates: start: 20060101
  7. LORAZEPAM [Concomitant]
     Indication: ANXIETY
     Dates: start: 20111013
  8. PREDNISONE TAB [Suspect]
     Dosage: 30 MG
     Route: 048
     Dates: start: 20111012, end: 20111018
  9. BUPROPION HCL [Concomitant]
     Indication: DEPRESSION
     Dates: start: 20030101
  10. LISINOPRIL [Concomitant]
     Indication: BLOOD PRESSURE
     Dates: start: 20030101
  11. ESTRADIOL [Concomitant]
     Indication: OESTROGEN REPLACEMENT THERAPY
     Dates: start: 20090101
  12. PREDNISONE TAB [Suspect]
     Indication: UVEITIS
     Dosage: 60 MG
     Route: 048
     Dates: start: 20110914, end: 20110927
  13. HUMIRA [Suspect]
     Indication: UVEITIS
     Route: 058
     Dates: start: 20110914, end: 20120208
  14. PROMETHAZINE [Concomitant]
     Indication: NAUSEA
     Dates: start: 20090101
  15. FUROSEMIDE [Concomitant]
     Indication: DIURETIC THERAPY
     Dates: start: 20050101
  16. PREDNISONE TAB [Suspect]
     Dosage: 20 MG
     Route: 048
     Dates: start: 20111019, end: 20111025
  17. PREDNISONE TAB [Suspect]
     Route: 048
     Dates: end: 20111228
  18. HUMIRA [Suspect]
     Route: 058
     Dates: start: 20120229
  19. KETOROLAC TROMETHAMINE [Concomitant]
     Indication: UVEITIS
     Route: 061
     Dates: start: 20081015
  20. CEFIXIME [Concomitant]
     Indication: BACK PAIN
     Dates: start: 20040101
  21. PREDNISONE TAB [Suspect]
     Dosage: 40 MG
     Route: 048
     Dates: start: 20111005, end: 20111011
  22. MYCOPHENOLATE MOFETIL [Concomitant]
     Dates: start: 20080101
  23. GABAPENTIN [Concomitant]
     Indication: ARTHRALGIA
     Dates: start: 20100101
  24. LORATADINE [Concomitant]
     Indication: HYPERSENSITIVITY
     Dates: start: 20030101
  25. DICLOFENAC SODIUM [Concomitant]
     Indication: ARTHRALGIA
     Dosage: 2 MG
     Dates: start: 20100101
  26. FOLIC ACID [Concomitant]
     Indication: VITAMIN SUPPLEMENTATION
     Dates: start: 20040101
  27. FUROSEMIDE [Concomitant]
     Indication: BLOOD PRESSURE
  28. SERTRALINE HYDROCHLORIDE [Concomitant]
     Indication: DEPRESSION
     Dates: start: 20080101

REACTIONS (1)
  - GASTROENTERITIS VIRAL [None]
